FAERS Safety Report 11663085 (Version 1)
Quarter: 2015Q4

REPORT INFORMATION
  Report Type: Spontaneous
  Country: US (occurrence: US)
  Receive Date: 20151027
  Receipt Date: 20151027
  Transmission Date: 20160304
  Serious: No
  Sender: FDA-Public Use
  Company Number: US-MEDA-2010100037

PATIENT
  Age: 45 Year
  Sex: Female

DRUGS (3)
  1. KADIAN [Concomitant]
     Active Substance: MORPHINE SULFATE
     Indication: PAIN
     Dates: start: 20101020
  2. OXYCODONE WITH ACETAMINIOPHEN [Concomitant]
     Indication: PAIN
     Dates: start: 20101020
  3. ONSOLIS [Suspect]
     Active Substance: FENTANYL CITRATE

REACTIONS (2)
  - Drug prescribing error [Recovered/Resolved]
  - Intercepted drug dispensing error [Recovered/Resolved]

NARRATIVE: CASE EVENT DATE: 20101020
